FAERS Safety Report 4358715-X (Version None)
Quarter: 2004Q2

REPORT INFORMATION
  Report Type: 
  Country: None (occurrence: None)
  Receive Date: 20040511
  Receipt Date: 20040427
  Transmission Date: 20050107
  Serious: Yes (Hospitalization)
  Sender: FDA-Public Use
  Company Number: 2004014897

PATIENT
  Age: 81 Year
  Sex: Female
  Weight: 83.9 kg

DRUGS (14)
  1. CYCLOKAPRON (TRANEXAMIC ACID) [Suspect]
     Indication: HAEMORRHAGE
     Dosage: 500 MG TABLETS - TOTAL 1000-1500 BID, ORAL
     Route: 048
     Dates: start: 20031201, end: 20040209
  2. ATENOLOL [Concomitant]
  3. CALCIUM (CALCIUM) [Concomitant]
  4. CITALOPRAM HYDROBROMIDE (CITALOPRAM HYDROBROMIDE) [Concomitant]
  5. DILTIAZEM HYDROCHLORIDE [Concomitant]
  6. FLUVASTATIN (FLUVASTATIN) [Concomitant]
  7. FUROSEMIDE [Concomitant]
  8. INSULIN HUMAN INJECTION, ISOPHANE (INSULIN HUMANINJECTION, ISOPHANE) [Concomitant]
  9. INSULIN HUMAN (INSULIN HUMAN) [Concomitant]
  10. IRBESARTAN (IRBESARTAN) [Concomitant]
  11. LEVOTHYROXINE SODIUM [Concomitant]
  12. TOLTERODINE L-TARTRATE (TOLTERODINE-L TARTRATE) [Concomitant]
  13. DIMENHYDRINATE (DIMENHYDRINATE) [Concomitant]
  14. ASASANTIN (ACETYLSALICYLIC ACID, DIPYRIDAMOLE) [Concomitant]

REACTIONS (8)
  - ANGIOPATHY [None]
  - ATROPHY [None]
  - CEREBROVASCULAR ACCIDENT [None]
  - DIZZINESS POSTURAL [None]
  - FALL [None]
  - HEMIPARESIS [None]
  - HYPOAESTHESIA [None]
  - PARAESTHESIA [None]
